FAERS Safety Report 9398479 (Version 2)
Quarter: 2013Q4

REPORT INFORMATION
  Report Type: Report from Study
  Country: GR (occurrence: GR)
  Receive Date: 20130712
  Receipt Date: 20131015
  Transmission Date: 20140711
  Serious: Yes (Other)
  Sender: FDA-Public Use
  Company Number: GR-B.I. PHARMACEUTICALS,INC./RIDGEFIELD-2013-BI-20343GD

PATIENT
  Sex: 0

DRUGS (1)
  1. VIRAMUNE [Suspect]
     Indication: HIV INFECTION

REACTIONS (1)
  - Blood lactic acid increased [Unknown]
